FAERS Safety Report 6467883-5 (Version None)
Quarter: 2009Q4

REPORT INFORMATION
  Report Type: 
  Country: None (occurrence: None)
  Receive Date: 20091119
  Receipt Date: 20090923
  Transmission Date: 20100525
  Serious: Yes (Hospitalization)
  Sender: FDA-Public Use
  Company Number: WAES 0909USA03725

PATIENT
  Age: 55 Year
  Sex: Female
  Weight: 73.4827 kg

DRUGS (20)
  1. JANUVIA [Suspect]
     Indication: TYPE 2 DIABETES MELLITUS
     Dosage: 50 MG/DAILY/PO
     Route: 048
     Dates: start: 20090717, end: 20090916
  2. ABILIFY [Concomitant]
  3. EFFEXOR XR [Concomitant]
  4. FORTEO [Concomitant]
  5. LIPITOR [Concomitant]
  6. MIRALAX [Concomitant]
  7. PLAVIX [Concomitant]
  8. PROAIR (ALBUTEROL SULFATE) [Concomitant]
  9. TYLENOL (CAPLET) [Concomitant]
  10. CALCIUM [Concomitant]
  11. FEXOFENADINE HCL [Concomitant]
  12. FOLIC ACID [Concomitant]
  13. FUROSEMIDE [Concomitant]
  14. GLIPIZIDE [Concomitant]
  15. HALOPERIDOL [Concomitant]
  16. LEVOTHYROXINE SODIUM [Concomitant]
  17. LISINOPRIL [Concomitant]
  18. LORAZEPAM [Concomitant]
  19. OMEPRAZOLE [Concomitant]
  20. VITAMIN D [Concomitant]

REACTIONS (1)
  - PANCREATITIS ACUTE [None]
